FAERS Safety Report 23745424 (Version 1)
Quarter: 2024Q2

REPORT INFORMATION
  Report Type: Spontaneous
  Country: US (occurrence: US)
  Receive Date: 20240416
  Receipt Date: 20240416
  Transmission Date: 20240715
  Serious: Yes (Other)
  Sender: FDA-Public Use
  Company Number: US-AUROBINDO-AUR-APL-2024-016627

PATIENT
  Age: 74 Year
  Sex: Female

DRUGS (11)
  1. NINTEDANIB [Suspect]
     Active Substance: NINTEDANIB
     Indication: Idiopathic pulmonary fibrosis
     Dosage: UNK
     Route: 065
  2. CHOLESTYRAMINE [Concomitant]
     Active Substance: CHOLESTYRAMINE
     Indication: Pancreatitis chronic
     Dosage: UNK
     Route: 065
  3. CHOLESTYRAMINE [Concomitant]
     Active Substance: CHOLESTYRAMINE
     Indication: Post cholecystectomy syndrome
  4. COLESEVELAM [Concomitant]
     Active Substance: COLESEVELAM
     Indication: Post cholecystectomy syndrome
     Dosage: UNK
     Route: 065
  5. COLESEVELAM [Concomitant]
     Active Substance: COLESEVELAM
     Indication: Pancreatitis chronic
  6. PANCRELIPASE [Concomitant]
     Active Substance: PANCRELIPASE
     Indication: Post cholecystectomy syndrome
     Dosage: UNK
     Route: 065
  7. PANCRELIPASE [Concomitant]
     Active Substance: PANCRELIPASE
     Indication: Pancreatitis chronic
  8. ATROPINE\DIPHENOXYLATE [Concomitant]
     Active Substance: ATROPINE\DIPHENOXYLATE
     Indication: Post cholecystectomy syndrome
     Dosage: UNK
     Route: 065
  9. ATROPINE\DIPHENOXYLATE [Concomitant]
     Active Substance: ATROPINE\DIPHENOXYLATE
     Indication: Pancreatitis chronic
  10. RIFAXIMIN [Concomitant]
     Active Substance: RIFAXIMIN
     Indication: Post cholecystectomy syndrome
     Dosage: UNK
     Route: 065
  11. RIFAXIMIN [Concomitant]
     Active Substance: RIFAXIMIN
     Indication: Pancreatitis chronic

REACTIONS (1)
  - Colitis [Recovered/Resolved]
